FAERS Safety Report 7073123 (Version 3)
Quarter: 2012Q4

REPORT INFORMATION
  Report Type: Report from Study
  Country: ES (occurrence: ES)
  Receive Date: 20090805
  Receipt Date: 20121010
  Transmission Date: 20130627
  Serious: Yes (Hospitalization, Other)
  Sender: FDA-Public Use
  Company Number: ES-JNJFOC-20090709996

PATIENT
  Age: 47 Year
  Sex: Female
  Weight: 80 kg

DRUGS (3)
  1. REMICADE [Suspect]
     Indication: ANKYLOSING SPONDYLITIS
     Dosage: dose^400^
     Route: 042
     Dates: start: 20060118, end: 20060208
  2. NSAID^S [Concomitant]
  3. OMEPRAZOLE [Concomitant]

REACTIONS (1)
  - Disseminated tuberculosis [Recovered/Resolved]
